FAERS Safety Report 5778127-1 (Version None)
Quarter: 2008Q2

REPORT INFORMATION
  Report Type: 
  Country: None (occurrence: None)
  Receive Date: 20080618
  Receipt Date: 20080618
  Transmission Date: 20081010
  Serious: No
  Sender: FDA-Public Use
  Company Number: None

PATIENT
  Sex: Male
  Weight: 67.586 kg

DRUGS (3)
  1. BEXXAR [Suspect]
     Indication: CHEMOTHERAPY
     Dosage: IV
     Route: 042
     Dates: start: 20060503
  2. BEXXAR [Suspect]
     Indication: IMMUNOSUPPRESSANT DRUG THERAPY
     Dosage: IV
     Route: 042
     Dates: start: 20060503
  3. FLUDARABINE PHOSPHATE [Suspect]
     Dosage: 4 X 5-DAY COURSE IV
     Route: 042
     Dates: start: 20000103, end: 20000420

REACTIONS (3)
  - CYTOGENETIC ABNORMALITY [None]
  - MYELODYSPLASTIC SYNDROME [None]
  - THROMBOCYTOPENIA [None]
